FAERS Safety Report 6790903-5 (Version None)
Quarter: 2010Q2

REPORT INFORMATION
  Report Type: 
  Country: None (occurrence: None)
  Receive Date: 20100624
  Receipt Date: 20100614
  Transmission Date: 20101027
  Serious: Yes (Other)
  Sender: FDA-Public Use
  Company Number: B0661252A

PATIENT
  Age: 2 Year
  Sex: Female

DRUGS (3)
  1. ALKERAN [Suspect]
     Indication: DRUG USE FOR UNKNOWN INDICATION
     Dosage: 7.5MGM2 PER DAY
     Route: 047
     Dates: start: 20081021
  2. ALKERAN [Suspect]
     Route: 042
     Dates: start: 20081021
  3. CRYOTHERAPY [Concomitant]

REACTIONS (5)
  - CHORIORETINAL ATROPHY [None]
  - EYELID OEDEMA [None]
  - OPTIC ATROPHY [None]
  - RETINAL ARTERY OCCLUSION [None]
  - VITREOUS HAEMORRHAGE [None]
